FAERS Safety Report 5955433-9 (Version None)
Quarter: 2008Q4

REPORT INFORMATION
  Report Type: 
  Country: None (occurrence: None)
  Receive Date: 20081113
  Receipt Date: 20081029
  Transmission Date: 20090506
  Serious: Yes (Death)
  Sender: FDA-Public Use
  Company Number: DSA_32618_2008

PATIENT
  Sex: Male

DRUGS (6)
  1. LORAZEPAM [Suspect]
     Indication: DRUG USE FOR UNKNOWN INDICATION
     Dosage: (3 MG QD ORAL), (4 MG QD ORAL)
     Route: 048
     Dates: start: 20080527, end: 20080615
  2. LORAZEPAM [Suspect]
     Indication: DRUG USE FOR UNKNOWN INDICATION
     Dosage: (3 MG QD ORAL), (4 MG QD ORAL)
     Route: 048
     Dates: start: 20080616, end: 20080626
  3. AKINETON [Suspect]
     Indication: DRUG USE FOR UNKNOWN INDICATION
     Dosage: (4 MG QD ORAL)
     Route: 048
     Dates: start: 20080610, end: 20080626
  4. LAMICTAL [Suspect]
     Indication: DRUG USE FOR UNKNOWN INDICATION
     Dosage: (400 MG QD ORAL)
     Route: 048
     Dates: start: 20080520, end: 20080626
  5. SEROQUEL [Suspect]
     Indication: DRUG USE FOR UNKNOWN INDICATION
     Dosage: (600 MG QD ORAL)
     Route: 048
     Dates: start: 20080520, end: 20080626
  6. HALDOL SOLUTAB [Concomitant]

REACTIONS (3)
  - COMPLETED SUICIDE [None]
  - DRUG DOSE OMISSION [None]
  - TREATMENT NONCOMPLIANCE [None]
